FAERS Safety Report 6632160-6 (Version None)
Quarter: 2010Q1

REPORT INFORMATION
  Report Type: 
  Country: None (occurrence: None)
  Receive Date: 20100310
  Receipt Date: 20100224
  Transmission Date: 20100710
  Serious: Yes (Hospitalization)
  Sender: FDA-Public Use
  Company Number: 2010SP012136

PATIENT
  Sex: Female

DRUGS (1)
  1. NUVARING [Suspect]
     Indication: DRUG USE FOR UNKNOWN INDICATION
     Dates: start: 20080701, end: 20081101

REACTIONS (4)
  - DEEP VEIN THROMBOSIS [None]
  - INFLAMMATION [None]
  - ORGAN FAILURE [None]
  - PANCREATITIS [None]
